FAERS Safety Report 6739682-8 (Version None)
Quarter: 2010Q2

REPORT INFORMATION
  Report Type: 
  Country: None (occurrence: None)
  Receive Date: 20100525
  Receipt Date: 20100524
  Transmission Date: 20101027
  Serious: Yes (Hospitalization)
  Sender: FDA-Public Use
  Company Number: GB-PERRIGO-10GB009854

PATIENT
  Age: 79 Year
  Sex: Female

DRUGS (16)
  1. IBUPROFEN [Suspect]
     Indication: PAIN
     Dosage: 400 MG, TID
     Route: 048
     Dates: start: 20091224, end: 20100418
  2. WARFARIN SODIUM [Concomitant]
     Indication: ATRIAL FIBRILLATION
     Dosage: UNK
     Route: 048
  3. ATORVASTATIN [Concomitant]
     Indication: HYPERCHOLESTEROLAEMIA
     Dosage: 40 MG, QD
     Route: 048
  4. CITALOPRAM [Concomitant]
     Indication: DEPRESSED MOOD
     Dosage: 20 MG, QD
     Route: 048
  5. CODEINE SULFATE [Concomitant]
     Indication: PAIN
     Dosage: 1 DF, QID
     Route: 048
  6. DIGOXIN [Concomitant]
     Indication: ATRIAL FIBRILLATION
     Dosage: 125 UG, QD
     Route: 048
  7. FRUSEMIDE [Concomitant]
     Indication: OEDEMA
     Dosage: 40 MG, QD
     Route: 048
  8. GLYCERYL TRINITRATE [Concomitant]
     Indication: ANGINA PECTORIS
     Dosage: PRN
     Route: 060
  9. HALOPERIDOL [Concomitant]
     Indication: HALLUCINATION
     Dosage: 1 G, QD
     Route: 048
  10. MAGNESIUM HYDROXIDE TAB [Concomitant]
     Indication: CONSTIPATION
     Dosage: 10 ML, BID
     Route: 048
  11. NORMAL SALINE [Concomitant]
     Indication: DRUG USE FOR UNKNOWN INDICATION
     Dosage: 1 DF, QID
     Route: 055
  12. OXYCODONE HCL [Concomitant]
     Indication: PAIN
     Dosage: PRN
     Route: 048
  13. SENNA [Concomitant]
     Indication: CONSTIPATION
     Dosage: 1 DF, QD
     Route: 048
  14. TRIMETHOPRIM [Concomitant]
     Indication: URINARY TRACT INFECTION
     Dosage: 200 MG/24 H, BID
     Route: 065
  15. VERAPAMIL [Concomitant]
     Indication: ANGINA PECTORIS
     Dosage: 240 MG, QD
     Route: 048
  16. ZOPICLONE [Concomitant]
     Indication: INSOMNIA
     Dosage: 3.75 MG, QD
     Route: 048

REACTIONS (3)
  - HAEMATEMESIS [None]
  - OESOPHAGEAL ULCER [None]
  - REFLUX OESOPHAGITIS [None]
